FAERS Safety Report 4554466-7 (Version None)
Quarter: 2004Q4

REPORT INFORMATION
  Report Type: 
  Country: None (occurrence: None)
  Receive Date: 20041222
  Receipt Date: 20040927
  Transmission Date: 20050328
  Serious: Yes (Other)
  Sender: FDA-Public Use
  Company Number: 2004071081

PATIENT
  Age: 31 Year
  Sex: Female
  Weight: 66 kg

DRUGS (20)
  1. VFEND [Suspect]
     Indication: LUNG INFILTRATION
     Dosage: 520 MG (260 MG, 1 IN 12 HR, INTRAVENOUS)
     Route: 042
     Dates: start: 20040920, end: 20040926
  2. AMLODIPINE BESYLATE [Concomitant]
  3. CALCIUM CARBONATE (CALCIUM CARBONATE) [Concomitant]
  4. CEFEPIME (CEFEPIME) [Concomitant]
  5. INSULIN [Concomitant]
  6. LOSARTAN POTASSIUM [Concomitant]
  7. MAGNESIUM SULFATE [Concomitant]
  8. PANTOPRAZOLE (PANTOPRAZOLE) [Concomitant]
  9. SPIRONOLACTONE [Concomitant]
  10. VERAPAMIL [Concomitant]
  11. CLONIDINE [Concomitant]
  12. HALOPERIDOL [Concomitant]
  13. ONDANSETRON HCL [Concomitant]
  14. OXYCODONE HYDROCHLORIDE AND ACETAMINOPHEN [Concomitant]
  15. FUROSEMIDE [Concomitant]
  16. VANCOMYCIN [Concomitant]
  17. ACYCLOVIR [Concomitant]
  18. CLINDAMYCIN (CLINDAMYCIN) [Concomitant]
  19. DIPHENHYDRAMINE HCL [Concomitant]
  20. ACETAMINOPHEN [Concomitant]

REACTIONS (7)
  - ANAEMIA [None]
  - BLOOD ALBUMIN DECREASED [None]
  - BLOOD ALKALINE PHOSPHATASE INCREASED [None]
  - BLOOD BILIRUBIN INCREASED [None]
  - BLOOD CREATININE DECREASED [None]
  - PLATELET COUNT DECREASED [None]
  - PROTEIN TOTAL DECREASED [None]
